FAERS Safety Report 15472878 (Version 2)
Quarter: 2020Q3

REPORT INFORMATION
  Report Type: Spontaneous
  Country: US (occurrence: US)
  Receive Date: 20181008
  Receipt Date: 20200907
  Transmission Date: 20201102
  Serious: No
  Sender: FDA-Public Use
  Company Number: US-PFIZER INC-2018397617

PATIENT
  Age: 56 Year
  Sex: Female
  Weight: 103.4 kg

DRUGS (11)
  1. SPRYCEL [Concomitant]
     Active Substance: DASATINIB
     Dosage: 70 MG, UNK
  2. METOLAZONE. [Concomitant]
     Active Substance: METOLAZONE
     Indication: FLUID RETENTION
     Dosage: 2.5 MG, UNK
  3. TORSEMIDE. [Concomitant]
     Active Substance: TORSEMIDE
     Indication: FLUID RETENTION
     Dosage: 20 MG, UNK
  4. CARVEDILOL. [Concomitant]
     Active Substance: CARVEDILOL
     Dosage: UNK (3.125 M)
  5. IRON WITH VITAMIN C [Concomitant]
     Dosage: UNK UNK, ALTERNATE DAY
     Dates: start: 202007
  6. POTASSIUM CHLORIDE. [Concomitant]
     Active Substance: POTASSIUM CHLORIDE
     Dosage: 20 MEQ, UNK
  7. BOSULIF [Suspect]
     Active Substance: BOSUTINIB MONOHYDRATE
     Dosage: 400 MG, DAILY
     Route: 048
     Dates: start: 20180925, end: 202007
  8. TYLENOL [Concomitant]
     Active Substance: ACETAMINOPHEN
     Dosage: 325 MG, UNK
  9. ZYRTEC [Concomitant]
     Active Substance: CETIRIZINE HYDROCHLORIDE
     Dosage: 10 MG, UNK
  10. ATORVASTATIN CALCIUM. [Concomitant]
     Active Substance: ATORVASTATIN CALCIUM
     Dosage: 20 MG, UNK
  11. BOSULIF [Suspect]
     Active Substance: BOSUTINIB MONOHYDRATE
     Indication: CHRONIC MYELOID LEUKAEMIA
     Dosage: 400 MG, DAILY
     Route: 048
     Dates: start: 20180815, end: 20180919

REACTIONS (11)
  - Chest discomfort [Recovered/Resolved]
  - Illness [Unknown]
  - Fluid retention [Recovering/Resolving]
  - Flushing [Recovered/Resolved]
  - Abdominal pain upper [Recovering/Resolving]
  - Sensitivity to weather change [Unknown]
  - Diarrhoea [Unknown]
  - Dyspepsia [Recovering/Resolving]
  - Gastric disorder [Unknown]
  - Gallbladder disorder [Unknown]
  - Oral candidiasis [Unknown]

NARRATIVE: CASE EVENT DATE: 2020
